FAERS Safety Report 8025325-2 (Version None)
Quarter: 2012Q1

REPORT INFORMATION
  Report Type: 
  Country: None (occurrence: None)
  Receive Date: 20120105
  Receipt Date: 20111230
  Transmission Date: 20120608
  Serious: Yes (Hospitalization, Other)
  Sender: FDA-Public Use
  Company Number: FR-PFIZER INC-2009194156

PATIENT
  Age: 53 Year
  Sex: Female

DRUGS (12)
  1. IMOVANE [Suspect]
     Route: 048
  2. PREVISCAN [Suspect]
     Dosage: 20 MG, UNK
     Route: 048
  3. ACETAMINOPHEN W/ PROPOXYPHENE HCL [Suspect]
     Route: 048
  4. XANAX [Suspect]
     Dosage: UNK
     Route: 048
  5. GLUCOPHAGE [Suspect]
     Indication: TYPE 2 DIABETES MELLITUS
     Dosage: 2 DF, 1X/DAY
     Route: 048
  6. DUPHALAC [Suspect]
     Route: 048
  7. MEDIATOR [Suspect]
     Indication: TYPE 2 DIABETES MELLITUS
     Dosage: 2 DF, DAILY
     Route: 048
     Dates: start: 20020101, end: 20050321
  8. IRBESARTAN [Suspect]
     Indication: HYPERTENSION
     Route: 048
  9. LASIX [Suspect]
     Dosage: UNK
  10. PRAVASTATIN [Suspect]
     Route: 048
  11. POTASSIUM CHLORIDE [Suspect]
  12. PAROXETINE HCL [Suspect]
     Indication: DEPRESSION
     Dosage: UNK
     Route: 048
     Dates: end: 20040101

REACTIONS (7)
  - MITRAL VALVE INCOMPETENCE [None]
  - TACHYCARDIA [None]
  - CARDIAC FAILURE [None]
  - ARTERIOSCLEROSIS CORONARY ARTERY [None]
  - PULMONARY ARTERIAL HYPERTENSION [None]
  - AORTIC VALVE INCOMPETENCE [None]
  - TRICUSPID VALVE DISEASE [None]
